FAERS Safety Report 6254287-3 (Version None)
Quarter: 2009Q3

REPORT INFORMATION
  Report Type: 
  Country: None (occurrence: None)
  Receive Date: 20090702
  Receipt Date: 20090622
  Transmission Date: 20100115
  Serious: Yes (Hospitalization, Other)
  Sender: FDA-Public Use
  Company Number: HQWYE558005MAY05

PATIENT
  Sex: Male

DRUGS (47)
  1. SIROLIMUS [Suspect]
     Indication: PROPHYLAXIS AGAINST TRANSPLANT REJECTION
     Route: 048
     Dates: start: 20040927, end: 20050712
  2. SIROLIMUS [Suspect]
     Route: 048
     Dates: start: 20050713, end: 20050723
  3. SIROLIMUS [Suspect]
     Route: 048
     Dates: start: 20050728, end: 20050729
  4. SIROLIMUS [Suspect]
     Route: 048
     Dates: start: 20050730, end: 20050819
  5. SIROLIMUS [Suspect]
     Route: 048
     Dates: start: 20050820, end: 20050825
  6. SIROLIMUS [Suspect]
     Route: 048
     Dates: start: 20050826, end: 20050828
  7. SIROLIMUS [Suspect]
     Route: 048
     Dates: start: 20050829
  8. DACLIZUMAB [Concomitant]
     Indication: PROPHYLAXIS AGAINST TRANSPLANT REJECTION
     Route: 042
     Dates: start: 20040927, end: 20040927
  9. DACLIZUMAB [Concomitant]
     Route: 042
     Dates: start: 20041011, end: 20041011
  10. DACLIZUMAB [Concomitant]
     Route: 042
     Dates: start: 20041025, end: 20041025
  11. DACLIZUMAB [Concomitant]
     Route: 048
     Dates: start: 20041108, end: 20041108
  12. DACLIZUMAB [Concomitant]
     Route: 048
     Dates: start: 20041123, end: 20041123
  13. MYCOPHENOLATE MOFETIL [Suspect]
     Indication: PROPHYLAXIS AGAINST TRANSPLANT REJECTION
     Route: 048
     Dates: start: 20040927, end: 20050711
  14. MYCOPHENOLATE MOFETIL [Suspect]
     Route: 048
     Dates: start: 20050712, end: 20050719
  15. CIPROFLOXACIN [Suspect]
     Route: 065
     Dates: start: 20050119, end: 20050411
  16. RAMIPRIL [Suspect]
     Route: 065
     Dates: start: 20041003, end: 20050411
  17. AMLODIPINE [Concomitant]
     Dosage: UNKNOWN
     Dates: start: 20040930
  18. AMPHOTERICIN B [Concomitant]
     Dosage: UNKNOWN
     Dates: start: 20040928, end: 20050629
  19. CLONIDINE [Concomitant]
     Dosage: UNKNOWN
     Dates: start: 20041006
  20. DIHYDRALAZINE SULFATE [Concomitant]
     Dosage: UNKNOWN
     Dates: start: 20040930
  21. DIHYDRALAZINE SULFATE [Concomitant]
     Dosage: UNKNOWN
     Dates: start: 20050725
  22. FUROSEMIDE INTENSOL [Concomitant]
     Dosage: UNKNOWN
     Dates: start: 20040112
  23. LEVOFLOXACIN [Concomitant]
     Dosage: UNKNOWN
     Dates: start: 20041001, end: 20041013
  24. URAPIDIL [Concomitant]
     Dosage: UNKNOWN
     Dates: start: 20040928, end: 20041008
  25. AMIODARONE HCL [Concomitant]
     Dosage: UNKNOWN
     Dates: start: 20040930, end: 20041006
  26. METOPROLOL SUCCINATE [Concomitant]
     Dosage: UNKNOWN
     Dates: start: 20040928
  27. CEFUROXIME [Concomitant]
     Dosage: UNKNOWN
     Dates: start: 20040928, end: 20041002
  28. CEFUROXIME [Concomitant]
     Dosage: UNKNOWN
     Dates: start: 20041220, end: 20041229
  29. KALINOR-BRAUSETABLETTEN [Concomitant]
     Dosage: UNKNOWN
     Dates: start: 20040102, end: 20050204
  30. PREDNISOLONE [Concomitant]
     Indication: PROPHYLAXIS AGAINST TRANSPLANT REJECTION
     Route: 048
     Dates: start: 20040928, end: 20041014
  31. PREDNISOLONE [Concomitant]
     Route: 048
     Dates: start: 20041014, end: 20050711
  32. PREDNISOLONE [Concomitant]
     Route: 048
     Dates: start: 20050712
  33. PREDNISOLONE [Suspect]
     Dosage: 100MG DAILY; VARIABLE DOSES ADJUSTMENTS
     Route: 042
     Dates: start: 20040927, end: 20050628
  34. ACYCLOVIR [Concomitant]
     Dosage: UNKNOWN
     Dates: start: 20050108, end: 20050114
  35. ATORVASTATIN CALCIUM [Concomitant]
     Dosage: UNKNOWN
     Dates: start: 20041113, end: 20050406
  36. EPOETIN ALFA [Concomitant]
     Dosage: UNKNOWN
     Dates: start: 20050323
  37. MOXONIDINE [Concomitant]
     Dosage: UNKNOWN
     Dates: start: 20050118, end: 20050823
  38. NEBACETIN [Concomitant]
     Dosage: UNKNOWN
     Dates: start: 20050108, end: 20050115
  39. SIMVASTATIN [Concomitant]
     Dosage: UNKNOWN
     Dates: start: 20050406
  40. TAZOBACTAM [Concomitant]
     Dosage: UNKNOWN
     Dates: start: 20050113, end: 20050717
  41. LORAZEPAM [Concomitant]
     Dosage: UNKNOWN
     Dates: start: 20040930
  42. METOPROLOL SUCCINATE [Concomitant]
     Dosage: UNKNOWN
     Dates: start: 20040928
  43. VORICONAZOLE [Concomitant]
     Dosage: UNKNOWN
     Dates: start: 20050716, end: 20050920
  44. PRIMAXIN [Concomitant]
     Dosage: UNKNOWN
     Dates: start: 20050719
  45. GANCICLOVIR [Concomitant]
     Dosage: UNKNOWN
     Dates: start: 20050716, end: 20050720
  46. IMIPENEM [Concomitant]
     Dosage: UNKNOWN
     Dates: start: 20050716, end: 20050729
  47. ACETYLCYSTEINE [Concomitant]
     Dosage: UNKNOWN
     Dates: start: 20041001, end: 20041016

REACTIONS (7)
  - ANGIOEDEMA [None]
  - BLOOD CREATININE INCREASED [None]
  - CONDITION AGGRAVATED [None]
  - DEHYDRATION [None]
  - LYMPHOCELE [None]
  - PNEUMONIA [None]
  - URINARY RETENTION [None]
